FAERS Safety Report 12414752 (Version 1)
Quarter: 2016Q2

REPORT INFORMATION
  Report Type: Spontaneous
  Country: RU (occurrence: RU)
  Receive Date: 20160529
  Receipt Date: 20160529
  Transmission Date: 20160815
  Serious: Yes (Other)
  Sender: FDA-Public Use
  Company Number: RU-SA-2016SA098079

PATIENT
  Age: 83 Year
  Sex: Male

DRUGS (14)
  1. OMEPRAZOLE. [Concomitant]
     Active Substance: OMEPRAZOLE
     Dates: start: 20160331
  2. DETRALEX [Concomitant]
     Active Substance: DIOSMIN\HESPERIDIN
     Dates: start: 20160408
  3. CLOPIDOGREL BISULFATE. [Suspect]
     Active Substance: CLOPIDOGREL BISULFATE
     Route: 065
     Dates: start: 20160215, end: 20160408
  4. WARFARIN [Suspect]
     Active Substance: WARFARIN
     Route: 065
     Dates: start: 20160405, end: 20160407
  5. METOPROLOL. [Concomitant]
     Active Substance: METOPROLOL
     Dates: start: 20160215
  6. ATORVASTATIN [Concomitant]
     Active Substance: ATORVASTATIN
     Dates: start: 20160215, end: 20160330
  7. IRON SULFATE [Concomitant]
     Active Substance: FERROUS SULFATE ANHYDROUS
     Dates: start: 20160408
  8. ENALAPRIL [Concomitant]
     Active Substance: ENALAPRIL
     Dates: start: 20160215, end: 20160330
  9. TRIBENOSIDE [Concomitant]
     Active Substance: TRIBENOSIDE
     Dates: start: 20160408
  10. TORASEMIDE [Concomitant]
     Active Substance: TORSEMIDE
     Dates: start: 20160215, end: 20160330
  11. ROSUVASTATIN. [Concomitant]
     Active Substance: ROSUVASTATIN
     Dates: start: 20160331
  12. VEROSPIRON [Concomitant]
     Active Substance: SPIRONOLACTONE
     Dates: start: 20160215
  13. ASPIRIN. [Suspect]
     Active Substance: ASPIRIN
     Route: 065
     Dates: start: 20160215, end: 20160408
  14. LIDOCAINE. [Concomitant]
     Active Substance: LIDOCAINE
     Dates: start: 20160408

REACTIONS (2)
  - Haemorrhage [Unknown]
  - Haemorrhoids [Unknown]

NARRATIVE: CASE EVENT DATE: 20160408
